FAERS Safety Report 23480018 (Version 2)
Quarter: 2024Q3

REPORT INFORMATION
  Report Type: Spontaneous
  Country: US (occurrence: US)
  Receive Date: 20240205
  Receipt Date: 20240701
  Transmission Date: 20241017
  Serious: No
  Sender: UCB
  Company Number: US-UCBSA-2023055243

PATIENT
  Age: 59 Year
  Sex: Female

DRUGS (4)
  1. LEVETIRACETAM [Suspect]
     Active Substance: LEVETIRACETAM
     Indication: Tonic clonic movements
     Dosage: UNK
  2. MIDAZOLAM [Suspect]
     Active Substance: MIDAZOLAM
     Indication: Tonic clonic movements
     Dosage: UNK
  3. MIDAZOLAM [Suspect]
     Active Substance: MIDAZOLAM
     Indication: Off label use
  4. LORAZEPAM [Suspect]
     Active Substance: LORAZEPAM
     Indication: Tonic clonic movements
     Dosage: UNK

REACTIONS (2)
  - Multiple-drug resistance [Unknown]
  - Off label use [Unknown]
